FAERS Safety Report 15700098 (Version 1)
Quarter: 2018Q4

REPORT INFORMATION
  Report Type: Spontaneous
  Country: CN (occurrence: CN)
  Receive Date: 20181207
  Receipt Date: 20181207
  Transmission Date: 20190205
  Serious: Yes (Other)
  Sender: FDA-Public Use
  Company Number: CN-PFIZER INC-2018493908

PATIENT
  Age: 75 Year
  Sex: Male
  Weight: 55 kg

DRUGS (1)
  1. LIPITOR [Suspect]
     Active Substance: ATORVASTATIN CALCIUM
     Indication: LUNG INFECTION
     Dosage: 20 MG, ONCE DAILY
     Route: 048
     Dates: start: 20180825, end: 20180913

REACTIONS (8)
  - Rhabdomyolysis [Unknown]
  - Blood creatine phosphokinase increased [Recovering/Resolving]
  - Myoglobin blood increased [Recovering/Resolving]
  - Blood creatine phosphokinase MB increased [Recovering/Resolving]
  - Haemoglobin increased [Unknown]
  - Platelet count increased [Unknown]
  - Renal impairment [Unknown]
  - Troponin increased [Recovering/Resolving]

NARRATIVE: CASE EVENT DATE: 20180912
